FAERS Safety Report 8904269 (Version 1)
Quarter: 2012Q4

REPORT INFORMATION
  Report Type: 
  Country: US (occurrence: US)
  Receive Date: 20121112
  Receipt Date: 20121112
  Transmission Date: 20130627
  Serious: Yes (Other)
  Sender: FDA-Public Use
  Company Number: US-GLAXOSMITHKLINE-A0998635A

PATIENT
  Age: 59 Year
  Sex: Female
  Weight: 69.5 kg

DRUGS (2)
  1. HORIZANT [Suspect]
     Indication: RESTLESS LEGS SYNDROME
     Dosage: 600MG per day
     Route: 065
     Dates: start: 199010
  2. NUVIGIL [Concomitant]
     Indication: HYPERSOMNIA
     Dosage: 250MG per day
     Route: 048

REACTIONS (3)
  - Atrial fibrillation [Recovering/Resolving]
  - Malaise [Recovering/Resolving]
  - Dyspnoea [Recovering/Resolving]
